FAERS Safety Report 8909285 (Version 1)
Quarter: 2012Q4

REPORT INFORMATION
  Report Type: Spontaneous
  Country: US (occurrence: None)
  Receive Date: 20121107
  Receipt Date: 20121107
  Transmission Date: 20130627
  Serious: Yes (Hospitalization)
  Sender: FDA-Public Use
  Company Number: AUR-APL-2012-04615

PATIENT
  Age: 2 Year
  Sex: Female

DRUGS (2)
  1. DONEPEZIL (DONEPEZIL) [Suspect]
     Indication: DRUG USE FOR UNKNOWN INDICATION
     Route: 048
  2. MEMANTINE [Suspect]
     Indication: DRUG USE FOR UNKNOWN INDICATION
     Route: 048

REACTIONS (11)
  - Encephalopathy [None]
  - Accidental exposure to product by child [None]
  - Drug level increased [None]
  - Agitation [None]
  - Hallucination, visual [None]
  - Sedation [None]
  - Respiratory rate increased [None]
  - Heart rate increased [None]
  - Blood pressure diastolic decreased [None]
  - Body temperature increased [None]
  - Eye movement disorder [None]
